FAERS Safety Report 5378735-6 (Version None)
Quarter: 2007Q3

REPORT INFORMATION
  Report Type: 
  Country: None (occurrence: None)
  Receive Date: 20070705
  Receipt Date: 20070625
  Transmission Date: 20080115
  Serious: Yes (Hospitalization, Disabling)
  Sender: FDA-Public Use
  Company Number: B0476601A

PATIENT
  Age: 50 Year
  Sex: Female
  Weight: 106 kg

DRUGS (1)
  1. AVANDIA [Suspect]
     Indication: DRUG USE FOR UNKNOWN INDICATION
     Dosage: 8MG PER DAY
     Dates: start: 20060301

REACTIONS (3)
  - FALL [None]
  - HUMERUS FRACTURE [None]
  - WEIGHT INCREASED [None]
